FAERS Safety Report 17718301 (Version 1)
Quarter: 2020Q2

REPORT INFORMATION
  Report Type: Report from Study
  Country: None (occurrence: US)
  Receive Date: 20200428
  Receipt Date: 20200428
  Transmission Date: 20200714
  Serious: Yes (Hospitalization, Other)
  Sender: FDA-Public Use
  Company Number: US-ABBVIE-20P-163-3322742-00

PATIENT
  Age: 64 Year
  Sex: Female
  Weight: 63.56 kg

DRUGS (1)
  1. RINVOQ [Suspect]
     Active Substance: UPADACITINIB
     Indication: RHEUMATOID ARTHRITIS
     Route: 048
     Dates: start: 20200212, end: 20200306

REACTIONS (8)
  - Pain in extremity [Unknown]
  - Pulmonary thrombosis [Unknown]
  - Palpitations [Recovered/Resolved]
  - Poor peripheral circulation [Unknown]
  - Thrombosis [Unknown]
  - Pulmonary embolism [Unknown]
  - Rheumatoid arthritis [Recovered/Resolved]
  - Deep vein thrombosis [Unknown]

NARRATIVE: CASE EVENT DATE: 2020
